FAERS Safety Report 6640714-6 (Version None)
Quarter: 2010Q1

REPORT INFORMATION
  Report Type: 
  Country: None (occurrence: None)
  Receive Date: 20100318
  Receipt Date: 20100305
  Transmission Date: 20100710
  Serious: Yes (Hospitalization, Other)
  Sender: FDA-Public Use
  Company Number: US-ELI_LILLY_AND_COMPANY-US201001002934

PATIENT
  Sex: Male
  Weight: 102.4 kg

DRUGS (5)
  1. BYETTA [Suspect]
     Dosage: UNK, UNKNOWN
     Dates: start: 20060101, end: 20080701
  2. LANTUS [Concomitant]
     Dosage: UNK, UNKNOWN
  3. ORAL ANTIDIABETICS [Concomitant]
     Dosage: UNK, UNKNOWN
  4. CHOLESTEROL- AND TRIGLYCERIDE REDUCERS [Concomitant]
     Dosage: UNK, UNKNOWN
  5. TYLENOL                                 /SCH/ [Concomitant]
     Dosage: UNK, UNKNOWN

REACTIONS (3)
  - GRANULOMATOUS LIVER DISEASE [None]
  - OFF LABEL USE [None]
  - PANCREATITIS ACUTE [None]
